FAERS Safety Report 8833890 (Version 1)
Quarter: 2012Q4

REPORT INFORMATION
  Report Type: 
  Country: US (occurrence: US)
  Receive Date: 20121010
  Receipt Date: 20121010
  Transmission Date: 20130627
  Serious: Yes (Other)
  Sender: FDA-Public Use
  Company Number: CHPA2012US020946

PATIENT
  Age: 72 Year
  Sex: Female

DRUGS (2)
  1. NUPERCAINAL [Suspect]
     Dosage: Unk, PRN
     Route: 061
     Dates: start: 1969
  2. UNSPECIFIED INGREDIENT [Concomitant]
     Dosage: Unk, Unk

REACTIONS (6)
  - Sleep apnoea syndrome [Not Recovered/Not Resolved]
  - Fibromyalgia [Not Recovered/Not Resolved]
  - Pain [Unknown]
  - Fatigue [Unknown]
  - Flatulence [Unknown]
  - Chest discomfort [Unknown]
